FAERS Safety Report 14963963 (Version 1)
Quarter: 2018Q2

REPORT INFORMATION
  Report Type: Spontaneous
  Country: US (occurrence: US)
  Receive Date: 20180601
  Receipt Date: 20180601
  Transmission Date: 20180711
  Serious: Yes (Other)
  Sender: FDA-Public Use
  Company Number: US-SA-2018SA145627

PATIENT
  Sex: Female

DRUGS (1)
  1. DUPIXENT [Suspect]
     Active Substance: DUPILUMAB
     Indication: ECZEMA
     Dosage: 150 MG/ML, QOW
     Route: 058
     Dates: start: 20171026

REACTIONS (4)
  - Bone disorder [Unknown]
  - Arthropathy [Unknown]
  - Pruritus [Unknown]
  - Intervertebral disc protrusion [Unknown]
